FAERS Safety Report 9468292 (Version 1)
Quarter: 2013Q3

REPORT INFORMATION
  Report Type: Spontaneous
  Country: US (occurrence: US)
  Receive Date: 20130821
  Receipt Date: 20130821
  Transmission Date: 20140515
  Serious: No
  Sender: FDA-Public Use
  Company Number: US-BAYER-2013-099485

PATIENT
  Sex: Male

DRUGS (1)
  1. ULTRAVIST INJECTION [Suspect]
     Dosage: UNK UNK, ONCE

REACTIONS (1)
  - Urticaria [None]
